FAERS Safety Report 7582938-X (Version None)
Quarter: 2011Q2

REPORT INFORMATION
  Report Type: 
  Country: None (occurrence: None)
  Receive Date: 20110630
  Receipt Date: 20080130
  Transmission Date: 20111010
  Serious: Yes (Death, Other)
  Sender: FDA-Public Use
  Company Number: US-BAYER-200813543NA

PATIENT
  Age: 58 Year
  Sex: Female
  Weight: 86.168 kg

DRUGS (32)
  1. TRASYLOL [Suspect]
     Indication: CORONARY ARTERY BYPASS
  2. AMLODIPINE BESYLATE [Concomitant]
     Dosage: UNK
     Dates: start: 20050301
  3. ATENOLOL [Concomitant]
     Dosage: 100 MG, BID
     Route: 048
     Dates: start: 20040101
  4. PLAVIX [Concomitant]
     Dosage: 75 MG, QD
     Route: 048
     Dates: start: 20040101
  5. CALCIUM CHLORIDE [Concomitant]
     Dosage: UNK
     Route: 042
     Dates: start: 20050311
  6. INSULIN [Concomitant]
     Indication: TYPE 2 DIABETES MELLITUS
     Dosage: 10 UNITS
     Route: 042
     Dates: start: 20050311, end: 20050318
  7. AZTREONAM [Concomitant]
     Dosage: 1 G, TID
     Route: 042
     Dates: start: 20050301
  8. LASIX [Concomitant]
     Dosage: UNK
     Route: 042
     Dates: start: 20050302
  9. ZOSYN [Concomitant]
     Dosage: 1.5 GRAMS
     Route: 042
     Dates: start: 20050301
  10. NORVASC [Concomitant]
     Dosage: 10 MG, QD
     Route: 048
     Dates: start: 20040101
  11. TRASYLOL [Suspect]
     Indication: MITRAL VALVE REPLACEMENT
  12. AMIODARONE HCL [Concomitant]
     Dosage: 400 MG, TID
     Dates: start: 20050301
  13. CLOPIDOGREL BISULFATE [Concomitant]
     Dosage: UNK
     Dates: start: 20050301
  14. HEPARIN [Concomitant]
     Dosage: 24,000 UNITS
     Route: 042
     Dates: start: 20050311, end: 20050311
  15. VERSED [Concomitant]
     Dosage: 5 MG
     Route: 042
     Dates: start: 20050311
  16. MAGNESIUM SULFATE [Concomitant]
     Dosage: 3 GRAMS
     Route: 042
     Dates: start: 20050311, end: 20050311
  17. ACETYLSALICYLIC ACID SRT [Concomitant]
     Dosage: 325 MG, QD
     Route: 048
     Dates: start: 20050302
  18. LISINOPRIL [Concomitant]
     Dosage: 40 MG, QD
     Route: 048
     Dates: start: 20030101
  19. NITROGLYCERIN [Concomitant]
     Dosage: UNK
     Route: 042
     Dates: start: 20050311, end: 20050311
  20. COLACE [Concomitant]
     Dosage: 100 MG, TID
     Route: 048
     Dates: start: 20050301
  21. COUMADIN [Concomitant]
     Dosage: UNK
     Dates: start: 20050301
  22. VANCOMYCIN [Concomitant]
     Dosage: 1 GRAM
     Route: 042
     Dates: start: 20050301
  23. HEPARIN [Concomitant]
     Dosage: UNK
     Route: 042
     Dates: start: 20050302
  24. LIPITOR [Concomitant]
     Dosage: 10 MG, QD
     Route: 048
     Dates: start: 20030101
  25. MINOXIDIL [Concomitant]
     Dosage: 1 MG, QD
     Route: 048
     Dates: start: 20050302
  26. TRASYLOL [Suspect]
     Indication: AORTIC VALVE REPLACEMENT
     Dosage: 50 ML/HOUR INFUSION
     Route: 042
     Dates: start: 20050311, end: 20050311
  27. ATIVAN [Concomitant]
     Dosage: UNK
     Route: 042
     Dates: start: 20050301
  28. HYDRALAZINE HCL [Concomitant]
     Dosage: 75 MG, BID
     Route: 048
     Dates: start: 20040101
  29. ACETAMINOPHEN [Concomitant]
     Dosage: UNK
     Route: 048
     Dates: start: 20050301
  30. LOPRESSOR [Concomitant]
     Dosage: 50 MG, QD
     Route: 048
     Dates: start: 20020101
  31. NOVOLIN [INSULIN] [Concomitant]
     Dosage: UNK
     Route: 058
     Dates: start: 20050301
  32. ZESTRIL [Concomitant]
     Dosage: 20 MG, QD
     Route: 048
     Dates: start: 20020101

REACTIONS (13)
  - MULTI-ORGAN FAILURE [None]
  - DEATH [None]
  - RENAL IMPAIRMENT [None]
  - EMOTIONAL DISTRESS [None]
  - STRESS [None]
  - FEAR [None]
  - ANHEDONIA [None]
  - ANXIETY [None]
  - UNEVALUABLE EVENT [None]
  - RENAL FAILURE [None]
  - PAIN [None]
  - RENAL INJURY [None]
  - INJURY [None]
